FAERS Safety Report 8400012-7 (Version None)
Quarter: 2012Q2

REPORT INFORMATION
  Report Type: 
  Country: None (occurrence: None)
  Receive Date: 20120531
  Receipt Date: 20120524
  Transmission Date: 20120825
  Serious: Yes (Other)
  Sender: FDA-Public Use
  Company Number: DE-AMGEN-DEUSP2012013492

PATIENT

DRUGS (4)
  1. PROLIA [Suspect]
     Dosage: 4 IU, UNK
     Dates: start: 20110825, end: 20110825
  2. PROLIA [Suspect]
     Dosage: 51 IU, UNK
     Dates: start: 20120313, end: 20120321
  3. PROLIA [Suspect]
     Dosage: 50 IU, UNK
     Dates: start: 20110802, end: 20110802
  4. PROLIA [Suspect]
     Indication: PRODUCT USED FOR UNKNOWN INDICATION
     Dosage: 63 IU, UNK
     Dates: start: 20110916, end: 20111208

REACTIONS (4)
  - PRURITUS [None]
  - SKIN REACTION [None]
  - DERMATOSIS [None]
  - ERYTHEMA [None]
